FAERS Safety Report 17621757 (Version 1)
Quarter: 2020Q2

REPORT INFORMATION
  Report Type: Spontaneous
  Country: US (occurrence: US)
  Receive Date: 20200402
  Receipt Date: 20200402
  Transmission Date: 20200713
  Serious: Yes (Disabling)
  Sender: FDA-Public Use
  Company Number: None

PATIENT
  Age: 67 Year
  Sex: Female
  Weight: 99.79 kg

DRUGS (11)
  1. QVAR REDIHALER [Suspect]
     Active Substance: BECLOMETHASONE DIPROPIONATE
  2. CYTOMEL [Concomitant]
     Active Substance: LIOTHYRONINE SODIUM
  3. LOSARTAN. [Concomitant]
     Active Substance: LOSARTAN
  4. PAROXETINE. [Concomitant]
     Active Substance: PAROXETINE
  5. PREDNISONE. [Concomitant]
     Active Substance: PREDNISONE
  6. VENTOLIN [Concomitant]
     Active Substance: ALBUTEROL SULFATE
  7. VIT D-3 CALCIUM [Concomitant]
  8. CIMETIDONE [Concomitant]
  9. Q-VAR80 [Concomitant]
  10. BENADRYL [Concomitant]
     Active Substance: DIPHENHYDRAMINE HYDROCHLORIDE
  11. TYLENOL [Concomitant]
     Active Substance: ACETAMINOPHEN

REACTIONS (2)
  - Asthma [None]
  - Device issue [None]
